FAERS Safety Report 9083487 (Version 1)
Quarter: 2013Q1

REPORT INFORMATION
  Report Type: Report from Study
  Country: US (occurrence: US)
  Receive Date: 20130130
  Receipt Date: 20130130
  Transmission Date: 20140127
  Serious: No
  Sender: FDA-Public Use
  Company Number: US-ABBOTT-12P-163-0979150-00

PATIENT
  Age: 61 None
  Sex: Female
  Weight: 74 kg

DRUGS (8)
  1. HUMIRA [Suspect]
     Indication: RHEUMATOID ARTHRITIS
     Dates: start: 2010, end: 201204
  2. HUMIRA [Suspect]
     Dates: start: 201209
  3. ALLOPURINOL (NON-ABBOTT) [Concomitant]
     Indication: GOUT
  4. WARFARIN (NON-ABBOTT) [Concomitant]
     Indication: ATRIAL FIBRILLATION
  5. CELEBREX [Concomitant]
     Indication: RHEUMATOID ARTHRITIS
  6. VITAMIN D [Concomitant]
     Indication: VITAMIN SUPPLEMENTATION
  7. METOPROLOL ER  (NON-ABBOTT) [Concomitant]
     Indication: ATRIAL FIBRILLATION
  8. VITAMIN D3 [Concomitant]
     Indication: VITAMIN SUPPLEMENTATION

REACTIONS (9)
  - Joint swelling [Not Recovered/Not Resolved]
  - Pain [Not Recovered/Not Resolved]
  - Gout [Not Recovered/Not Resolved]
  - Burning sensation [Not Recovered/Not Resolved]
  - Pain in extremity [Not Recovered/Not Resolved]
  - Nausea [Not Recovered/Not Resolved]
  - Asthenia [Not Recovered/Not Resolved]
  - Fatigue [Not Recovered/Not Resolved]
  - Somnolence [Not Recovered/Not Resolved]
